FAERS Safety Report 11600150 (Version 1)
Quarter: 2015Q3

REPORT INFORMATION
  Report Type: Spontaneous
  Country: US (occurrence: US)
  Receive Date: 20150916
  Receipt Date: 20150916
  Transmission Date: 20151125
  Serious: No
  Sender: FDA-Public Use
  Company Number: US-ELI_LILLY_AND_COMPANY-US201407005574

PATIENT
  Age: 69 Year
  Sex: Female

DRUGS (2)
  1. HUMALOG [Suspect]
     Active Substance: INSULIN LISPRO
     Indication: TYPE 1 DIABETES MELLITUS
     Dosage: 3 U, TID
     Route: 065
  2. HUMULIN N [Concomitant]
     Active Substance: INSULIN HUMAN
     Route: 065

REACTIONS (2)
  - Blood glucose decreased [Unknown]
  - Drug effect delayed [Unknown]
